FAERS Safety Report 17739432 (Version 1)
Quarter: 2020Q2

REPORT INFORMATION
  Report Type: Spontaneous
  Country: US (occurrence: US)
  Receive Date: 20200501
  Receipt Date: 20200501
  Transmission Date: 20200714
  Serious: Yes (Hospitalization)
  Sender: FDA-Public Use
  Company Number: None

PATIENT
  Age: 74 Year
  Sex: Male
  Weight: 85.28 kg

DRUGS (1)
  1. CEPHALEXIN (CEPHALEXIN 500MG CAP) [Suspect]
     Active Substance: CEPHALEXIN
     Indication: URINARY TRACT INFECTION
     Route: 048
     Dates: start: 20200330, end: 20200408

REACTIONS (4)
  - Dermatitis exfoliative [None]
  - Skin exfoliation [None]
  - Rash [None]
  - Rash erythematous [None]

NARRATIVE: CASE EVENT DATE: 20200416
